FAERS Safety Report 6011376-6 (Version None)
Quarter: 2008Q4

REPORT INFORMATION
  Report Type: 
  Country: None (occurrence: None)
  Receive Date: 20081217
  Receipt Date: 20081217
  Transmission Date: 20090506
  Serious: Yes (Other)
  Sender: FDA-Public Use
  Company Number: None

PATIENT
  Age: 37 Year
  Sex: Male
  Weight: 88.4514 kg

DRUGS (1)
  1. AVELOX [Suspect]
     Indication: EAR INFECTION
     Dosage: 400MG 1/DAY PO
     Route: 048
     Dates: start: 20081215, end: 20081215

REACTIONS (7)
  - ABDOMINAL PAIN UPPER [None]
  - ANXIETY [None]
  - HEART RATE IRREGULAR [None]
  - MALAISE [None]
  - MYALGIA [None]
  - PANIC ATTACK [None]
  - VISION BLURRED [None]
